FAERS Safety Report 4658909-X (Version None)
Quarter: 2005Q2

REPORT INFORMATION
  Report Type: 
  Country: None (occurrence: None)
  Receive Date: 20050509
  Receipt Date: 20050425
  Transmission Date: 20051028
  Serious: Yes (Hospitalization)
  Sender: FDA-Public Use
  Company Number: 2005051212

PATIENT
  Age: 70 Year
  Sex: Female
  Weight: 60 kg

DRUGS (9)
  1. LYRICA [Suspect]
     Indication: ILL-DEFINED DISORDER
     Dosage: 150 MG (75 MG, 2 IN 1 D), ORAL
     Route: 048
     Dates: start: 20050118, end: 20050121
  2. ALL OTHER THERAPEUTIC PRODUCTS (ALL OTHER THERAPEUTIC PRODUCTS) [Concomitant]
  3. RISEDRONATE SODIUM (RISEDRONATE SODIUM) [Concomitant]
  4. ALLOPURINOL [Concomitant]
  5. ATENOLOL [Concomitant]
  6. TOLTERODINE TARTRATE [Concomitant]
  7. TELMISARTAN (TELMISARTAN) [Concomitant]
  8. ANTI-DIABETICS (ANTI-DIABETICS) [Concomitant]
  9. SIMVASTATIN [Concomitant]

REACTIONS (6)
  - ASTHENIA [None]
  - CHILLS [None]
  - MUSCULOSKELETAL STIFFNESS [None]
  - PRURITUS [None]
  - SYNCOPE [None]
  - URTICARIA [None]
